FAERS Safety Report 13785049 (Version 4)
Quarter: 2017Q4

REPORT INFORMATION
  Report Type: Report from Study
  Country: None (occurrence: CA)
  Receive Date: 20170725
  Receipt Date: 20171004
  Transmission Date: 20180320
  Serious: Yes (Other)
  Sender: FDA-Public Use
  Company Number: CA-ABBVIE-16K-028-1658142-00

PATIENT
  Age: 62 Year
  Sex: Female

DRUGS (2)
  1. HUMIRA [Suspect]
     Active Substance: ADALIMUMAB
     Route: 058
     Dates: start: 20170726
  2. HUMIRA [Suspect]
     Active Substance: ADALIMUMAB
     Indication: COLITIS ULCERATIVE
     Route: 058
     Dates: start: 20151008, end: 2017

REACTIONS (10)
  - Sleep apnoea syndrome [Unknown]
  - Arthralgia [Not Recovered/Not Resolved]
  - Rotator cuff syndrome [Recovered/Resolved]
  - Ligament rupture [Not Recovered/Not Resolved]
  - Injury [Unknown]
  - Post procedural complication [Recovering/Resolving]
  - Mobility decreased [Recovering/Resolving]
  - Sensory disturbance [Recovering/Resolving]
  - Pain in extremity [Not Recovered/Not Resolved]
  - Muscle rupture [Recovered/Resolved]

NARRATIVE: CASE EVENT DATE: 2016
